FAERS Safety Report 6865852-4 (Version None)
Quarter: 2010Q3

REPORT INFORMATION
  Report Type: 
  Country: None (occurrence: None)
  Receive Date: 20100722
  Receipt Date: 20100716
  Transmission Date: 20110219
  Serious: Yes (Hospitalization)
  Sender: FDA-Public Use
  Company Number: US-BIOGENIDEC-2010BI022023

PATIENT
  Age: 63 Year
  Sex: Female
  Weight: 86 kg

DRUGS (17)
  1. TYSABRI [Suspect]
     Indication: MULTIPLE SCLEROSIS
     Route: 042
     Dates: start: 20090330
  2. VITAMIN D [Concomitant]
  3. LYRICA [Concomitant]
     Route: 048
  4. OXYBUTYNIN CHLORIDE [Concomitant]
     Route: 048
  5. MIRAPEX [Concomitant]
     Route: 048
  6. EXELON [Concomitant]
  7. ACETAMINOPHEN [Concomitant]
     Route: 048
  8. CYMBALTA [Concomitant]
     Route: 048
  9. MELOXICAM [Concomitant]
     Route: 048
  10. TRAMADOL [Concomitant]
     Route: 048
  11. HYDROCODONE [Concomitant]
     Route: 048
  12. DIAZEPAM [Concomitant]
     Route: 048
  13. THYROID ARMOUR [Concomitant]
     Route: 048
  14. PROZAC [Concomitant]
     Route: 048
  15. IBUPROFEN [Concomitant]
     Route: 048
  16. LISINOPRIL [Concomitant]
     Route: 048
  17. METOPROLOL [Concomitant]
     Route: 048

REACTIONS (3)
  - ANAEMIA [None]
  - MULTIPLE SCLEROSIS RELAPSE [None]
  - PYELONEPHRITIS [None]
